FAERS Safety Report 25129075 (Version 3)
Quarter: 2025Q3

REPORT INFORMATION
  Report Type: Spontaneous
  Country: EU (occurrence: EU)
  Receive Date: 20250327
  Receipt Date: 20250805
  Transmission Date: 20251020
  Serious: Yes (Hospitalization, Other)
  Sender: MYLAN
  Company Number: EU-ROCHE-10000171482

PATIENT
  Age: 54 Year
  Sex: Male

DRUGS (11)
  1. MYCOPHENOLATE MOFETIL [Suspect]
     Active Substance: MYCOPHENOLATE MOFETIL
     Indication: Prophylaxis against graft versus host disease
  2. MYCOPHENOLATE MOFETIL [Suspect]
     Active Substance: MYCOPHENOLATE MOFETIL
     Indication: Graft versus host disease
  3. RITUXIMAB [Suspect]
     Active Substance: RITUXIMAB
     Indication: Epstein-Barr virus infection reactivation
  4. CYCLOSPORINE [Concomitant]
     Active Substance: CYCLOSPORINE
     Indication: Prophylaxis against graft versus host disease
  5. CYCLOSPORINE [Concomitant]
     Active Substance: CYCLOSPORINE
     Indication: Graft versus host disease
  6. ANAKINRA [Concomitant]
     Active Substance: ANAKINRA
  7. RUXOLITINIB [Concomitant]
     Active Substance: RUXOLITINIB
     Dosage: 5 MILLIGRAM, BID (355 NG.H/ML)
  8. DEXAMETHASONE [Concomitant]
     Active Substance: DEXAMETHASONE
  9. DAUNORUBICIN [Concomitant]
     Active Substance: DAUNORUBICIN
  10. CYTARABINE [Concomitant]
     Active Substance: CYTARABINE
  11. VENETOCLAX [Concomitant]
     Active Substance: VENETOCLAX

REACTIONS (8)
  - Staphylococcal infection [Unknown]
  - Epstein-Barr virus infection reactivation [Unknown]
  - Viral haemorrhagic cystitis [Unknown]
  - BK virus infection [Unknown]
  - Escherichia bacteraemia [Unknown]
  - Staphylococcal bacteraemia [Unknown]
  - Haematuria [Unknown]
  - Product use in unapproved indication [Unknown]
